FAERS Safety Report 7531214-X (Version None)
Quarter: 2011Q2

REPORT INFORMATION
  Report Type: 
  Country: None (occurrence: None)
  Receive Date: 20110608
  Receipt Date: 20110525
  Transmission Date: 20111010
  Serious: Yes (Hospitalization, Other)
  Sender: FDA-Public Use
  Company Number: US-BAYER-2011-042403

PATIENT
  Age: 60 Year
  Sex: Male

DRUGS (3)
  1. SWISH AND SWALLOW MOUTHWASH [Suspect]
     Indication: RASH
  2. SORAFENIB (RAF KINASE INHIBITOR) [Suspect]
     Indication: HEPATIC NEOPLASM MALIGNANT
     Dosage: 400 MG, BID
     Dates: start: 20110429, end: 20110519
  3. PEPTO BISMOL [Suspect]

REACTIONS (9)
  - DRY MOUTH [None]
  - FLUID RETENTION [None]
  - MELAENA [None]
  - RASH [None]
  - GENITAL RASH [None]
  - STOMATITIS [None]
  - SCROTAL PAIN [None]
  - ORAL DISCOMFORT [None]
  - ABDOMINAL PAIN [None]
